FAERS Safety Report 10047241 (Version 1)
Quarter: 2014Q1

REPORT INFORMATION
  Report Type: Spontaneous
  Country: US (occurrence: US)
  Receive Date: 20140331
  Receipt Date: 20140331
  Transmission Date: 20141002
  Serious: No
  Sender: FDA-Public Use
  Company Number: US-MYLANLABS-2013S1023865

PATIENT
  Age: 57 Year
  Sex: Female

DRUGS (2)
  1. FENTANYL TRANSDERMAL SYSTEM [Suspect]
     Dosage: Q36H
     Route: 062
     Dates: start: 2012, end: 201308
  2. FENTANYL TRANSDERMAL SYSTEM [Suspect]
     Dosage: Q36
     Route: 062
     Dates: start: 201308, end: 201310

REACTIONS (3)
  - Feeling abnormal [Recovered/Resolved]
  - Wrong technique in drug usage process [Recovered/Resolved]
  - Incorrect dose administered [Recovered/Resolved]
